FAERS Safety Report 14165075 (Version 1)
Quarter: 2017Q4

REPORT INFORMATION
  Report Type: Spontaneous
  Country: US (occurrence: None)
  Receive Date: 20171107
  Receipt Date: 20171107
  Transmission Date: 20180321
  Serious: Yes (Other)
  Sender: FDA-Public Use
  Company Number: None

PATIENT
  Age: 38 Year
  Sex: Female
  Weight: 85.28 kg

DRUGS (5)
  1. COLACE [Concomitant]
     Active Substance: DOCUSATE SODIUM
  2. ATIVAN [Concomitant]
     Active Substance: LORAZEPAM
  3. LATUDA [Suspect]
     Active Substance: LURASIDONE HYDROCHLORIDE
  4. CYMBALTA [Concomitant]
     Active Substance: DULOXETINE HYDROCHLORIDE
  5. WELLBUTRIN [Concomitant]
     Active Substance: BUPROPION HYDROCHLORIDE

REACTIONS (4)
  - Caesarean section [None]
  - Maternal drugs affecting foetus [None]
  - Placenta praevia [None]
  - Maternal exposure during pregnancy [None]

NARRATIVE: CASE EVENT DATE: 20160218
